FAERS Safety Report 5123809-8 (Version None)
Quarter: 2006Q3

REPORT INFORMATION
  Report Type: 
  Country: None (occurrence: None)
  Receive Date: 20060802
  Receipt Date: 20060125
  Transmission Date: 20061208
  Serious: Yes (Hospitalization)
  Sender: FDA-Public Use
  Company Number: 2006-01-1604

PATIENT
  Age: 43 Year
  Sex: Female
  Weight: 100.6985 kg

DRUGS (11)
  1. RIBAVIRIN [Suspect]
     Indication: HEPATITIS C
     Dosage: 1200-400MG*QD ORAL
     Route: 048
     Dates: start: 20051028, end: 20051120
  2. RIBAVIRIN [Suspect]
     Indication: HEPATITIS C
     Dosage: 1200-400MG*QD ORAL
     Route: 048
     Dates: start: 20051121, end: 20051129
  3. RIBAVIRIN [Suspect]
     Indication: HEPATITIS C
     Dosage: 1200-400MG*QD ORAL
     Route: 048
     Dates: start: 20051028, end: 20060110
  4. RIBAVIRIN [Suspect]
     Indication: HEPATITIS C
     Dosage: 1200-400MG*QD ORAL
     Route: 048
     Dates: start: 20051130, end: 20060110
  5. INFERGEN [Suspect]
     Indication: HEPATITIS C
     Dosage: 15 MCG QD SUBCUTANEOUS
     Route: 058
     Dates: start: 20051028, end: 20060110
  6. OXCARBAZEPINE [Concomitant]
  7. TOPAMAX [Concomitant]
  8. LAMOTRIGINE [Concomitant]
  9. TRAZODONE HCL [Concomitant]
  10. RISPERIDONE [Concomitant]
  11. CYMBALTA (DULOXETINE HCL) [Concomitant]

REACTIONS (1)
  - ANAEMIA [None]
